FAERS Safety Report 18918509 (Version 2)
Quarter: 2021Q1

REPORT INFORMATION
  Report Type: Spontaneous
  Country: CA (occurrence: CA)
  Receive Date: 20210219
  Receipt Date: 20210304
  Transmission Date: 20210420
  Serious: Yes (Other)
  Sender: FDA-Public Use
  Company Number: CA-BAXTER-2021BAX003308

PATIENT
  Age: 3 Year
  Sex: Female
  Weight: 14.3 kg

DRUGS (4)
  1. PLASMA?LYTE A [Suspect]
     Active Substance: MAGNESIUM CHLORIDE\POTASSIUM CHLORIDE\SODIUM ACETATE\SODIUM CHLORIDE\SODIUM GLUCONATE
     Indication: FLUID REPLACEMENT
     Dosage: BOLUS AT SLOWER RATE
     Route: 042
     Dates: start: 20210214, end: 202102
  2. TETRACAINE. [Concomitant]
     Active Substance: TETRACAINE
     Indication: PRODUCT USED FOR UNKNOWN INDICATION
     Dosage: GIVE 15 MINUTES PRIOR TO ELECTIVE CAPILLARY GAS, CAPILLARY BLOOD GLUCOSE SAMPLING, VENOUS BLOOD SAMP
     Route: 061
     Dates: start: 20210211
  3. PLASMA?LYTE A [Suspect]
     Active Substance: MAGNESIUM CHLORIDE\POTASSIUM CHLORIDE\SODIUM ACETATE\SODIUM CHLORIDE\SODIUM GLUCONATE
     Indication: HYPOTENSION
     Dosage: BOLUS 10 ML/KG
     Route: 042
     Dates: start: 20210214, end: 20210214
  4. NIMODIPINE. [Concomitant]
     Active Substance: NIMODIPINE
     Indication: PRODUCT USED FOR UNKNOWN INDICATION
     Dosage: PO (ORAL) Q4H (EVERY 4 HOURS)
     Route: 048
     Dates: start: 20210212

REACTIONS (2)
  - Cardiac arrest [Recovered/Resolved]
  - Arrhythmia [Recovered/Resolved]

NARRATIVE: CASE EVENT DATE: 20210214
